FAERS Safety Report 10045954 (Version 2)
Quarter: 2014Q1

REPORT INFORMATION
  Report Type: Spontaneous
  Country: US (occurrence: US)
  Receive Date: 20140330
  Receipt Date: 20140330
  Transmission Date: 20141002
  Serious: Yes (Disabling)
  Sender: FDA-Public Use
  Company Number: US-GE HEALTHCARE MEDICAL DIAGNOSTICS-OSCN-PR-0910S-0454

PATIENT
  Age: 78 Year
  Sex: Female

DRUGS (5)
  1. OMNISCAN [Suspect]
     Indication: AORTIC VALVE STENOSIS
     Route: 042
     Dates: start: 20050915, end: 20050915
  2. GADOLINIUM (UNSPECIFIED) [Suspect]
     Indication: HYPERTENSION
     Route: 042
     Dates: start: 20000920, end: 20000920
  3. MULTIHANCE [Suspect]
     Indication: STENT PLACEMENT
     Route: 042
     Dates: start: 20070208, end: 20070208
  4. MULTIHANCE [Suspect]
     Indication: STENT PLACEMENT
     Route: 042
     Dates: start: 20070517, end: 20070517
  5. MULTIHANCE [Suspect]
     Indication: STENT PLACEMENT
     Route: 042
     Dates: start: 20070920, end: 20070920

REACTIONS (1)
  - Nephrogenic systemic fibrosis [Not Recovered/Not Resolved]
